FAERS Safety Report 9743260 (Version 1)
Quarter: 2013Q4

REPORT INFORMATION
  Report Type: Spontaneous
  Country: US (occurrence: US)
  Receive Date: 20131210
  Receipt Date: 20131210
  Transmission Date: 20140711
  Serious: No
  Sender: FDA-Public Use
  Company Number: US-GILEAD-2009-0025148

PATIENT
  Sex: Female
  Weight: 70.31 kg

DRUGS (8)
  1. LETAIRIS [Suspect]
     Indication: PULMONARY ARTERIAL HYPERTENSION
     Route: 048
     Dates: start: 20091016
  2. ALLOPURINOL [Concomitant]
  3. PROTONIX [Concomitant]
  4. NORVASC [Concomitant]
  5. ASPIRIN [Concomitant]
  6. METOPROLOL [Concomitant]
  7. PRENAVITE [Concomitant]
  8. ZEGERID [Concomitant]

REACTIONS (2)
  - Abdominal pain upper [Unknown]
  - Swelling [Unknown]
